FAERS Safety Report 6708978-8 (Version None)
Quarter: 2010Q2

REPORT INFORMATION
  Report Type: 
  Country: None (occurrence: None)
  Receive Date: 20100504
  Receipt Date: 20100421
  Transmission Date: 20101027
  Serious: Yes (Other)
  Sender: FDA-Public Use
  Company Number: PHEH2010US03179

PATIENT
  Sex: Male
  Weight: 102.4 kg

DRUGS (6)
  1. EXJADE [Suspect]
     Indication: ACUTE MYELOID LEUKAEMIA
     Dosage: 2000 MG DAILY
     Route: 048
     Dates: start: 20090920, end: 20091201
  2. EXJADE [Suspect]
     Indication: IRON OVERLOAD
  3. ASPIRIN [Concomitant]
     Dosage: 81 MG, QD
     Route: 048
  4. CERESTAT [Concomitant]
     Dosage: 10 MG, QD
     Route: 048
  5. CENTRUM SILVER [Concomitant]
     Route: 048
  6. STOOL SOFTENER [Concomitant]

REACTIONS (9)
  - BLOOD CREATININE INCREASED [None]
  - BLOOD ERYTHROPOIETIN INCREASED [None]
  - BLOOD GLUCOSE INCREASED [None]
  - BLOOD IRON INCREASED [None]
  - BLOOD UREA INCREASED [None]
  - EPIDERMAL GROWTH FACTOR RECEPTOR DECREASED [None]
  - PROTEIN TOTAL DECREASED [None]
  - RENAL DISORDER [None]
  - SERUM FERRITIN INCREASED [None]
